FAERS Safety Report 5346263-X (Version None)
Quarter: 2007Q2

REPORT INFORMATION
  Report Type: 
  Country: None (occurrence: None)
  Receive Date: 20070430
  Receipt Date: 20070103
  Transmission Date: 20071010
  Serious: No
  Sender: FDA-Public Use
  Company Number: 259690

PATIENT
  Age: 83 Year
  Sex: Male

DRUGS (3)
  1. LEVEMIR [Suspect]
     Indication: INSULIN-REQUIRING TYPE II DIABETES MELLITUS
     Dosage: 10 IU, QD, SUBCUTANEOUS
     Route: 058
     Dates: start: 20061201
  2. METFORMIN HCL [Concomitant]
  3. STARLIX [Concomitant]

REACTIONS (1)
  - INJECTION SITE HAEMATOMA [None]
